FAERS Safety Report 8611759-1 (Version None)
Quarter: 2012Q3

REPORT INFORMATION
  Report Type: 
  Country: None (occurrence: None)
  Receive Date: 20120822
  Receipt Date: 20120818
  Transmission Date: 20120928
  Serious: Yes (Hospitalization, Other)
  Sender: FDA-Public Use
  Company Number: CA-CELGENEUS-028-C5013-12012779

PATIENT
  Sex: Male
  Weight: 75 kg

DRUGS (45)
  1. LENALIDOMIDE [Suspect]
     Dosage: 10 MILLIGRAM
     Route: 048
     Dates: start: 20120104, end: 20120124
  2. DEXAMETHASONE [Suspect]
     Indication: MULTIPLE MYELOMA
     Dosage: 2.8571 MILLIGRAM
     Route: 065
     Dates: start: 20100622
  3. DRONEDARON [Concomitant]
     Dosage: 800 MILLIGRAM
     Route: 048
     Dates: start: 20100917
  4. CARBOCAL D [Concomitant]
     Indication: CALCIUM DEFICIENCY
     Dosage: 500-400MG
     Dates: start: 20100623, end: 20110426
  5. FERREX SULFATE [Concomitant]
     Dosage: 150 MILLIGRAM
     Route: 048
     Dates: start: 20120126, end: 20120129
  6. FUROSEMIDE [Concomitant]
     Indication: FLUID OVERLOAD
     Dosage: 20 MILLIGRAM
     Route: 048
     Dates: start: 20100930, end: 20101009
  7. FUROSEMIDE [Concomitant]
     Dosage: 10 MILLIGRAM
     Route: 041
     Dates: start: 20120131, end: 20120131
  8. DILTIAZEM [Concomitant]
     Indication: HYPERTENSION
     Dosage: 120 MILLIGRAM
     Route: 048
     Dates: start: 20060411, end: 20100711
  9. HEPARIN [Concomitant]
     Indication: THROMBOSIS PROPHYLAXIS
     Dosage: 5000 IU (INTERNATIONAL UNIT)
     Route: 065
     Dates: start: 20100712, end: 20100713
  10. DOCUSATE [Concomitant]
     Indication: CONSTIPATION
     Route: 048
     Dates: start: 20101105, end: 20110329
  11. EPOGEN [Concomitant]
     Dosage: 10000 IU (INTERNATIONAL UNIT)
     Route: 058
     Dates: start: 20120131, end: 20120221
  12. CITALOPRAM HYDROBROMIDE [Concomitant]
     Dosage: 20 MILLIGRAM
     Route: 048
     Dates: start: 20100909
  13. VITAMIN K TAB [Concomitant]
     Dosage: 5 MILLIGRAM
     Route: 065
     Dates: start: 20100710, end: 20100710
  14. SENNOSIDE [Concomitant]
     Indication: CONSTIPATION
     Route: 048
     Dates: start: 20110104, end: 20110329
  15. DEXAMETHASONE [Suspect]
     Dosage: 2.8571 MILLIGRAM
     Route: 065
     Dates: start: 20120104, end: 20120111
  16. ACETYLSALICYLIC ACID SRT [Concomitant]
     Dosage: 81 MILLIGRAM
     Route: 048
     Dates: start: 20051123
  17. FUROSEMIDE [Concomitant]
     Dosage: 20 MILLIGRAM
     Route: 048
     Dates: start: 20101019, end: 20110426
  18. DILTIAZEM [Concomitant]
     Dosage: 60 MILLIGRAM
     Route: 048
     Dates: start: 20100714, end: 20100914
  19. LINSEED [Concomitant]
     Indication: CONSTIPATION
     Route: 048
     Dates: start: 20080602, end: 20101105
  20. SENNOSIDE [Concomitant]
     Dosage: 8.6 MILLIGRAM
     Route: 048
     Dates: start: 20120211
  21. SIMVASTATIN [Concomitant]
     Indication: DYSLIPIDAEMIA
     Dosage: 20 MILLIGRAM
     Route: 048
     Dates: start: 20051018
  22. PSYLLIUM [Concomitant]
     Indication: CONSTIPATION
     Dosage: 1 DOSAGE FORMS
     Route: 048
     Dates: start: 20080601
  23. ASPIRIN [Concomitant]
     Route: 065
  24. FLU [Concomitant]
     Indication: INFECTION PROPHYLAXIS
     Route: 065
     Dates: start: 20101103, end: 20101103
  25. DALTEPARIN SODIUM [Concomitant]
     Indication: THROMBOSIS PROPHYLAXIS
     Route: 065
     Dates: start: 20100917, end: 20100919
  26. TINZAPARIN [Concomitant]
     Indication: THROMBOSIS PROPHYLAXIS
     Dosage: 12000 IU (INTERNATIONAL UNIT)
     Route: 058
     Dates: start: 20120216, end: 20120219
  27. LENALIDOMIDE [Suspect]
     Indication: MULTIPLE MYELOMA
     Dosage: 10 MILLIGRAM
     Route: 048
     Dates: start: 20100622
  28. WARFARIN SODIUM [Concomitant]
     Route: 048
     Dates: start: 20070321
  29. FUROSEMIDE [Concomitant]
     Indication: PROPHYLAXIS
     Dosage: 20 MILLIGRAM
     Route: 048
  30. FUROSEMIDE [Concomitant]
     Dosage: 10 MILLIGRAM
     Route: 048
     Dates: start: 20110519
  31. CANDESARTAN W/HYDROCHLOROTHIAZIDE [Concomitant]
     Indication: HYPERTENSION
     Dosage: 16-12.5MG
     Route: 048
     Dates: start: 20051104, end: 20100803
  32. SENNOSIDE [Concomitant]
     Dosage: 17.2 MILLIGRAM
     Route: 048
     Dates: start: 20120128, end: 20120209
  33. BISACODYL [Concomitant]
     Indication: CONSTIPATION
     Dosage: 10 MILLIGRAM
     Route: 054
     Dates: start: 20120128, end: 20120128
  34. AZOTH LIQUID [Concomitant]
     Route: 065
     Dates: start: 20111101, end: 20111101
  35. WARFARIN SODIUM [Concomitant]
     Indication: THROMBOSIS PROPHYLAXIS
     Dosage: 2.5-5MG
     Route: 048
  36. ESOMEPRAZOLE SODIUM [Concomitant]
     Indication: PROPHYLAXIS AGAINST GASTROINTESTINAL ULCER
     Dosage: 40 MILLIGRAM
     Route: 048
     Dates: start: 20070502
  37. CITALOPRAM HYDROBROMIDE [Concomitant]
     Indication: DEPRESSION
     Dosage: 10 MILLIGRAM
     Route: 048
     Dates: start: 20100802, end: 20100909
  38. FUROSEMIDE [Concomitant]
     Dosage: 20 MILLIGRAM
     Route: 048
     Dates: start: 20100710, end: 20100710
  39. GARLIC [Concomitant]
     Indication: SUPPLEMENTATION THERAPY
     Dosage: 1 CAPSULE
     Route: 048
     Dates: start: 20050101, end: 20101101
  40. PAMIDRONATE DISODIUM [Concomitant]
     Indication: BONE LESION
     Dosage: 90 MILLIGRAM
     Route: 065
     Dates: start: 20100707, end: 20110406
  41. DOCUSATE [Concomitant]
     Dosage: 200 MILLIGRAM
     Route: 048
     Dates: start: 20120127
  42. POTASSIUM CHLORIDE [Concomitant]
     Dosage: 8 MILLIEQUIVALENTS
     Route: 002
     Dates: start: 20120126, end: 20120201
  43. POTASSIUM CHLORIDE [Concomitant]
     Dosage: 16 MILLIEQUIVALENTS
     Route: 002
     Dates: start: 20120201, end: 20120328
  44. AZITHROMYCIN [Concomitant]
     Indication: LUNG INFECTION
     Dosage: 250 MILLIGRAM
     Route: 048
     Dates: start: 20120123, end: 20120127
  45. ACETAMINOPHEN [Concomitant]
     Dosage: 650 MILLIGRAM
     Route: 048
     Dates: start: 20120126, end: 20120220

REACTIONS (2)
  - FALL [None]
  - SQUAMOUS CELL CARCINOMA OF SKIN [None]
